FAERS Safety Report 16243143 (Version 7)
Quarter: 2020Q1

REPORT INFORMATION
  Report Type: Report from Study
  Country: DE (occurrence: DE)
  Receive Date: 20190426
  Receipt Date: 20200116
  Transmission Date: 20200409
  Serious: Yes (Other)
  Sender: FDA-Public Use
  Company Number: DE-ROCHE-2297486

PATIENT
  Age: 44 Year
  Sex: Female
  Weight: 63 kg

DRUGS (10)
  1. PREDNISOLON [PREDNISOLONE] [Concomitant]
     Active Substance: PREDNISOLONE
     Dosage: SIDE EFFECT PROPHYLAXIS OF OCREVUS
     Route: 042
     Dates: start: 20190410, end: 20190410
  2. CORTISONE [Suspect]
     Active Substance: CORTISONE
     Indication: PREMEDICATION
     Route: 065
  3. OCREVUS [Suspect]
     Active Substance: OCRELIZUMAB
     Indication: SECONDARY PROGRESSIVE MULTIPLE SCLEROSIS
     Route: 042
     Dates: start: 20190327
  4. AERIUS (DESLORATADINE) [Concomitant]
     Active Substance: DESLORATADINE
     Route: 048
     Dates: start: 20190409, end: 20190411
  5. OCREVUS [Suspect]
     Active Substance: OCRELIZUMAB
     Route: 042
     Dates: start: 20191029
  6. RANITIDIN [Concomitant]
     Active Substance: RANITIDINE HYDROCHLORIDE
     Dosage: SIDE EFFECT PROPHYLAXIS OF OCREVUS
     Route: 048
     Dates: start: 20190326, end: 20190326
  7. OCREVUS [Suspect]
     Active Substance: OCRELIZUMAB
     Route: 042
     Dates: start: 20190410
  8. RANITIDIN [Concomitant]
     Active Substance: RANITIDINE HYDROCHLORIDE
     Route: 048
     Dates: start: 20190409, end: 20190411
  9. PREDNISOLON [PREDNISOLONE] [Concomitant]
     Active Substance: PREDNISOLONE
     Route: 042
     Dates: start: 20190327, end: 20190327
  10. AERIUS (DESLORATADINE) [Concomitant]
     Active Substance: DESLORATADINE
     Dosage: SIDE EFFECT PROPHYLAXIS OF OCREVUS
     Route: 048
     Dates: start: 20190326, end: 20190326

REACTIONS (12)
  - Sleep disorder [Recovered/Resolved]
  - Oral herpes [Recovered/Resolved]
  - Weight increased [Not Recovered/Not Resolved]
  - Pain in extremity [Recovered/Resolved]
  - Off label use [Unknown]
  - Vomiting [Recovered/Resolved]
  - Intentional product use issue [Unknown]
  - Pain in extremity [Recovered/Resolved]
  - Nausea [Recovered/Resolved]
  - Diarrhoea [Recovered/Resolved]
  - Insomnia [Recovered/Resolved]
  - Increased appetite [Not Recovered/Not Resolved]

NARRATIVE: CASE EVENT DATE: 20190327
